FAERS Safety Report 8277554-0 (Version None)
Quarter: 2012Q2

REPORT INFORMATION
  Report Type: 
  Country: None (occurrence: None)
  Receive Date: 20120412
  Receipt Date: 20120410
  Transmission Date: 20120825
  Serious: Yes (Other)
  Sender: FDA-Public Use
  Company Number: US-B.I. PHARMACEUTICALS,INC./RIDGEFIELD-2012-BP-05090BP

PATIENT
  Sex: Male
  Weight: 22.4 kg

DRUGS (1)
  1. CLONIDINE HCL [Suspect]
     Indication: ATTENTION DEFICIT/HYPERACTIVITY DISORDER
     Dates: start: 20110822, end: 20120305

REACTIONS (1)
  - ATRIOVENTRICULAR BLOCK FIRST DEGREE [None]
